FAERS Safety Report 8789369 (Version 1)
Quarter: 2012Q4

REPORT INFORMATION
  Report Type: Spontaneous
  Country: DK (occurrence: None)
  Receive Date: 20120905
  Receipt Date: 20120905
  Transmission Date: 20130627
  Serious: Yes (Other)
  Sender: FDA-Public Use
  Company Number: 2012MA010482

PATIENT
  Age: 45 Year
  Sex: Female

DRUGS (5)
  1. DIAZEPAM [Suspect]
     Route: 048
  2. OXAZEPAM [Suspect]
     Dosage: 1 DF; ; PO
     Route: 048
  3. VENLAFAXINE HYDROCHLORIDE [Suspect]
     Route: 048
  4. RIVOTRIL TABLET [Concomitant]
  5. DEPAKINE CHRONO MGA [Concomitant]

REACTIONS (4)
  - Hypertonia [None]
  - Pupils unequal [None]
  - Balance disorder [None]
  - Joint stiffness [None]
